FAERS Safety Report 5037365-6 (Version None)
Quarter: 2006Q2

REPORT INFORMATION
  Report Type: 
  Country: None (occurrence: None)
  Receive Date: 20060605
  Receipt Date: 20060329
  Transmission Date: 20061013
  Serious: No
  Sender: FDA-Public Use
  Company Number: IND-AE-06-SAN-015

PATIENT
  Sex: Male
  Weight: 65.7716 kg

DRUGS (5)
  1. SANCTURA [Suspect]
     Indication: HYPERTONIC BLADDER
     Dosage: 20 MG BID ORAL
     Route: 048
     Dates: start: 20060327, end: 20060327
  2. ZOCOR [Concomitant]
  3. BACLOFEN [Concomitant]
  4. ZOLOFT [Concomitant]
  5. BUSIPIRONE [Concomitant]

REACTIONS (1)
  - TREMOR [None]
